FAERS Safety Report 8566219-3 (Version None)
Quarter: 2012Q3

REPORT INFORMATION
  Report Type: 
  Country: None (occurrence: None)
  Receive Date: 20120803
  Receipt Date: 20111129
  Transmission Date: 20120928
  Serious: No
  Sender: FDA-Public Use
  Company Number: US-ABBOTT-11P-163-0878953-00

PATIENT
  Sex: Male
  Weight: 78.088 kg

DRUGS (9)
  1. DETROL [Concomitant]
     Indication: URINARY INCONTINENCE
  2. SYNTHROID [Concomitant]
     Indication: THYROID DISORDER
  3. PREVACID [Concomitant]
     Indication: HIATUS HERNIA
  4. PREVACID [Concomitant]
     Indication: GASTROOESOPHAGEAL REFLUX DISEASE
  5. NIASPAN [Suspect]
     Dates: start: 20110301, end: 20110501
  6. NIASPAN [Suspect]
     Indication: BLOOD CHOLESTEROL
     Dates: start: 20101101, end: 20110301
  7. NIASPAN [Suspect]
     Dates: start: 20110501
  8. FLOMAX [Concomitant]
     Indication: BLADDER DISORDER
  9. TIMOLOL MALEATE [Concomitant]
     Indication: ABNORMAL SENSATION IN EYE

REACTIONS (4)
  - DIZZINESS [None]
  - MIDDLE INSOMNIA [None]
  - FLUSHING [None]
  - LOW DENSITY LIPOPROTEIN INCREASED [None]
